FAERS Safety Report 17545116 (Version 1)
Quarter: 2020Q1

REPORT INFORMATION
  Report Type: Spontaneous
  Country: US (occurrence: US)
  Receive Date: 20200313
  Receipt Date: 20200313
  Transmission Date: 20200409
  Serious: No
  Sender: FDA-Public Use
  Company Number: None

PATIENT
  Age: 36 Year
  Sex: Male
  Weight: 80.55 kg

DRUGS (3)
  1. FLONASE ALLERGY RELIEF [Suspect]
     Active Substance: FLUTICASONE PROPIONATE
     Indication: SEASONAL ALLERGY
     Dosage: ?          OTHER STRENGTH:MCG;QUANTITY:0.34 FL OZ;OTHER FREQUENCY:TWICE;?
     Route: 045
     Dates: start: 20200311, end: 20200313
  2. ONE A DAY MEN^S PRO EDGE COMPLETE MULTIVITAMIN [Concomitant]
  3. OLIVE LEAF EXTRACT [Concomitant]

REACTIONS (2)
  - Aggression [None]
  - Product formulation issue [None]

NARRATIVE: CASE EVENT DATE: 20200313
